FAERS Safety Report 10009812 (Version 1)
Quarter: 2014Q1

REPORT INFORMATION
  Report Type: Spontaneous
  Country: US (occurrence: US)
  Receive Date: 20140313
  Receipt Date: 20140313
  Transmission Date: 20141002
  Serious: No
  Sender: FDA-Public Use
  Company Number: US-B.I. PHARMACEUTICALS,INC./RIDGEFIELD-2014-BI-09907BP

PATIENT
  Age: 51 Year
  Sex: Female

DRUGS (11)
  1. TRADJENTA [Suspect]
     Indication: DIABETES MELLITUS
     Dosage: 5 MG
     Route: 048
     Dates: start: 20140301
  2. METFORMIN [Concomitant]
     Route: 048
  3. GLYBURIDE [Concomitant]
     Dosage: 10 MG
     Route: 048
  4. LISINOPRIL [Concomitant]
     Dosage: 10 MG
     Route: 048
  5. BYSTOLIC [Concomitant]
     Dosage: 20 MG
     Route: 048
  6. LASIX [Concomitant]
     Dosage: 40 MG
     Route: 048
  7. DICLOFENAC [Concomitant]
     Dosage: 150 MG
     Route: 048
  8. POTASSIUM [Concomitant]
     Dosage: 20 MEQ
     Route: 048
  9. PRILOSEC [Concomitant]
     Dosage: 40 MG
     Route: 048
  10. LEVOTHYROXINE [Concomitant]
     Dosage: 75 MCG
     Route: 048
  11. CRESTOR [Concomitant]
     Dosage: 5 MG
     Route: 048

REACTIONS (1)
  - Drug ineffective [Not Recovered/Not Resolved]
